FAERS Safety Report 4332860-7 (Version None)
Quarter: 2004Q1

REPORT INFORMATION
  Report Type: 
  Country: None (occurrence: None)
  Receive Date: 20040330
  Receipt Date: 20040315
  Transmission Date: 20041129
  Serious: Yes (Hospitalization)
  Sender: FDA-Public Use
  Company Number: US-JNJFOC-20040205867

PATIENT
  Age: 51 Year
  Sex: Female
  Weight: 54.4316 kg

DRUGS (15)
  1. REMICADE [Suspect]
     Indication: ANKYLOSING SPONDYLITIS
     Dosage: SEE IMAGE
     Route: 042
     Dates: start: 20040211, end: 20040211
  2. REMICADE [Suspect]
     Indication: COLITIS ULCERATIVE
     Dosage: SEE IMAGE
     Route: 042
     Dates: start: 20040211, end: 20040211
  3. REMICADE [Suspect]
     Indication: CROHN'S DISEASE
     Dosage: SEE IMAGE
     Route: 042
     Dates: start: 20040211, end: 20040211
  4. AMBIEN (CALCIUM) [Concomitant]
  5. MVI (MULTIVITAMINS) [Concomitant]
  6. FIORINAL (BUTALBITAL W/ASPIRIN, CAFEINE) [Concomitant]
  7. FLEXERIL [Concomitant]
  8. METHOTREXATE SODIUM [Concomitant]
  9. FOSAMAX [Concomitant]
  10. ACETYLSALICYLIC ACID SRT [Concomitant]
  11. PERCOCET [Concomitant]
  12. SKELEX (FERROCHOLINATE) [Concomitant]
  13. VICODIN [Concomitant]
  14. LEUCOVORIN CALCIUM [Concomitant]
  15. METHOTREXATE [Concomitant]

REACTIONS (14)
  - ARTHRALGIA [None]
  - DIARRHOEA [None]
  - HEART RATE INCREASED [None]
  - HYPOTENSION [None]
  - JOINT EFFUSION [None]
  - JOINT SWELLING [None]
  - NAUSEA [None]
  - NECK PAIN [None]
  - PHARYNGITIS STREPTOCOCCAL [None]
  - PHARYNGOLARYNGEAL PAIN [None]
  - POLYARTHRITIS [None]
  - RASH ERYTHEMATOUS [None]
  - RENAL FAILURE [None]
  - SEPSIS [None]
